FAERS Safety Report 8549244-8 (Version None)
Quarter: 2012Q3

REPORT INFORMATION
  Report Type: 
  Country: None (occurrence: None)
  Receive Date: 20120730
  Receipt Date: 20120725
  Transmission Date: 20120928
  Serious: Yes (Other)
  Sender: FDA-Public Use
  Company Number: PHHY2012JP064465

PATIENT
  Age: 35 Year
  Sex: Female

DRUGS (2)
  1. CARBAMAZEPINE [Suspect]
     Dosage: 1200 MG PER DAY
  2. CARBAMAZEPINE [Suspect]
     Indication: TRIGEMINAL NEURALGIA
     Dosage: 600 MG PER DAY

REACTIONS (6)
  - TRIGEMINAL NEURALGIA [None]
  - CENTRAL NERVOUS SYSTEM LESION [None]
  - CONVERSION DISORDER [None]
  - WOUND COMPLICATION [None]
  - IRRITABILITY [None]
  - CONDITION AGGRAVATED [None]
